FAERS Safety Report 9416724 (Version 2)
Quarter: 2013Q3

REPORT INFORMATION
  Report Type: Spontaneous
  Country: US (occurrence: US)
  Receive Date: 20130724
  Receipt Date: 20130809
  Transmission Date: 20140515
  Serious: Yes (Other)
  Sender: FDA-Public Use
  Company Number: US-PFIZER INC-2013212552

PATIENT
  Age: 71 Year
  Sex: Female
  Weight: 47.62 kg

DRUGS (3)
  1. LIPITOR [Suspect]
     Indication: BLOOD CHOLESTEROL INCREASED
     Dosage: 10 MG, 1X/DAY
     Route: 048
     Dates: start: 2007, end: 2010
  2. VITAMIN D3 [Concomitant]
     Dosage: UNK
  3. CALCIUM [Concomitant]
     Dosage: UNK

REACTIONS (4)
  - Loss of consciousness [Unknown]
  - Arterial disorder [Unknown]
  - Malaise [Not Recovered/Not Resolved]
  - Anaemia [Unknown]
